FAERS Safety Report 23063335 (Version 1)
Quarter: 2023Q4

REPORT INFORMATION
  Report Type: Spontaneous
  Country: US (occurrence: None)
  Receive Date: 20231012
  Receipt Date: 20231012
  Transmission Date: 20240109
  Serious: Yes (Disabling, Other)
  Sender: FDA-Public Use
  Company Number: None

PATIENT
  Age: 30 Year
  Sex: Female
  Weight: 72 kg

DRUGS (2)
  1. HYALURONIDASE [Suspect]
     Active Substance: HYALURONIDASE
  2. XANAX [Concomitant]
     Active Substance: ALPRAZOLAM

REACTIONS (4)
  - Skin discolouration [None]
  - Poisoning [None]
  - Exercise tolerance decreased [None]
  - Grip strength decreased [None]

NARRATIVE: CASE EVENT DATE: 20220610
